FAERS Safety Report 5759782-9 (Version None)
Quarter: 2008Q2

REPORT INFORMATION
  Report Type: 
  Country: None (occurrence: None)
  Receive Date: 20080605
  Receipt Date: 20080529
  Transmission Date: 20081010
  Serious: Yes (Hospitalization)
  Sender: FDA-Public Use
  Company Number: B0522738A

PATIENT
  Age: 83 Year
  Sex: Female

DRUGS (4)
  1. PAROXETINE HCL [Suspect]
     Indication: ANXIETY
     Route: 048
  2. TRAZODONE HYDROCHLORIDE [Suspect]
     Indication: ANXIETY
     Route: 048
  3. RISPERIDONE [Suspect]
     Indication: VERBAL ABUSE
     Route: 048
  4. CYPROHEPTADINE HYDROCHLORIDE [Concomitant]
     Route: 048

REACTIONS (16)
  - AGGRESSION [None]
  - ALTERED STATE OF CONSCIOUSNESS [None]
  - CHILLS [None]
  - DELIRIUM [None]
  - DRUG INTERACTION [None]
  - EXTRAPYRAMIDAL DISORDER [None]
  - HYPERHIDROSIS [None]
  - HYPERTONIA [None]
  - INSOMNIA [None]
  - IRRITABILITY [None]
  - MYOCLONUS [None]
  - NEGATIVISM [None]
  - PYREXIA [None]
  - SEROTONIN SYNDROME [None]
  - TREMOR [None]
  - VERBAL ABUSE [None]
